FAERS Safety Report 15292241 (Version 1)
Quarter: 2018Q3

REPORT INFORMATION
  Report Type: Spontaneous
  Country: US (occurrence: US)
  Receive Date: 20180806
  Receipt Date: 20180806
  Transmission Date: 20181010
  Serious: Yes (Life-Threatening)
  Sender: FDA-Public Use
  Company Number: None

PATIENT
  Age: 75 Year
  Sex: Male
  Weight: 84.4 kg

DRUGS (1)
  1. BRIDION [Suspect]
     Active Substance: SUGAMMADEX
     Indication: REVERSAL OF SEDATION
     Dosage: ?          OTHER FREQUENCY:ONCE;?
     Route: 042
     Dates: start: 20180606, end: 20180606

REACTIONS (6)
  - Pulse absent [None]
  - Anaphylactic reaction [None]
  - Blood pressure decreased [None]
  - Haemodynamic instability [None]
  - Bronchospasm [None]
  - Urticaria [None]

NARRATIVE: CASE EVENT DATE: 20180606
